FAERS Safety Report 5918059-9 (Version None)
Quarter: 2008Q4

REPORT INFORMATION
  Report Type: 
  Country: None (occurrence: None)
  Receive Date: 20081014
  Receipt Date: 20080929
  Transmission Date: 20090506
  Serious: Yes (Hospitalization)
  Sender: FDA-Public Use
  Company Number: AU-JNJCH-2008025902

PATIENT

DRUGS (1)
  1. SINUTAB PE SINUS + PAIN RELIEF [Suspect]
     Indication: SEASONAL ALLERGY
     Dosage: TEXT:TWO TABLETS AT 11PM
     Route: 048
     Dates: start: 20080926, end: 20080927

REACTIONS (1)
  - ASTHMA [None]
